FAERS Safety Report 5583133-6 (Version None)
Quarter: 2008Q1

REPORT INFORMATION
  Report Type: 
  Country: None (occurrence: None)
  Receive Date: 20080107
  Receipt Date: 20071231
  Transmission Date: 20080703
  Serious: Yes (Life-Threatening, Disabling, Other)
  Sender: FDA-Public Use
  Company Number: CA-ASTRAZENECA-2007UW12347

PATIENT
  Age: 13421 Day
  Sex: Female

DRUGS (3)
  1. SYMBICORT [Suspect]
     Indication: ASTHMA
     Route: 055
  2. VENTOLIN [Concomitant]
  3. PEN V [Concomitant]
     Indication: PHARYNGOLARYNGEAL PAIN
     Route: 048

REACTIONS (5)
  - POSTPARTUM HAEMORRHAGE [None]
  - PREMATURE BABY [None]
  - PREMATURE SEPARATION OF PLACENTA [None]
  - RETAINED PLACENTA OR MEMBRANES [None]
  - SHORTENED CERVIX [None]
